FAERS Safety Report 24168184 (Version 1)
Quarter: 2024Q3

REPORT INFORMATION
  Report Type: Spontaneous
  Country: CH (occurrence: CH)
  Receive Date: 20240802
  Receipt Date: 20240802
  Transmission Date: 20241016
  Serious: Yes (Hospitalization, Other)
  Sender: SANOFI AVENTIS
  Company Number: None

PATIENT
  Sex: Male
  Weight: 2.9 kg

DRUGS (11)
  1. KEVZARA [Suspect]
     Active Substance: SARILUMAB
     Indication: Sjogren^s syndrome
     Dosage: 200 MG, QOW
     Route: 064
     Dates: start: 2021, end: 20230622
  2. ENOXAPARIN SODIUM [Suspect]
     Active Substance: ENOXAPARIN SODIUM
     Indication: Prophylaxis
     Dosage: 40 MG, QD
     Route: 064
     Dates: start: 20230928, end: 20240225
  3. ETORICOXIB [Suspect]
     Active Substance: ETORICOXIB
     Dosage: 30 MG IN RESERVE MAX 2X/DAY, STOPPED IN THE FIRST TRIMESTER
     Route: 064
     Dates: end: 2023
  4. PREDNISONE [Suspect]
     Active Substance: PREDNISONE
     Dosage: 15 MG IN THE MORNING (QD)
     Route: 064
     Dates: end: 202307
  5. PREDNISONE [Suspect]
     Active Substance: PREDNISONE
     Dosage: 10-20 MG, QD
     Route: 064
     Dates: end: 20231009
  6. PREDNISONE [Suspect]
     Active Substance: PREDNISONE
     Dosage: 5-10 MG, QD
     Route: 064
     Dates: start: 20231010
  7. ASPIRIN [Suspect]
     Active Substance: ASPIRIN
     Dosage: 100 MG, QD
     Route: 064
     Dates: start: 20230913, end: 20240223
  8. CIMZIA [Suspect]
     Active Substance: CERTOLIZUMAB PEGOL
     Indication: Sjogren^s syndrome
     Dosage: UNK UNK, QOW
     Route: 064
     Dates: start: 202307, end: 20240227
  9. ANDREAFOL [Concomitant]
     Dosage: 0.4 MG, QD (IN THE EVENING)
     Route: 064
  10. FERROUS SULFATE [Concomitant]
     Active Substance: FERROUS SULFATE
     Dosage: 80 MG, QD (IN THE MORNING)
     Route: 064
  11. TETRAHYDROZOLINE HYDROCHLORIDE [Concomitant]
     Active Substance: TETRAHYDROZOLINE HYDROCHLORIDE
     Dosage: UNK
     Route: 064

REACTIONS (5)
  - Polyhydramnios [Recovered/Resolved]
  - Transient tachypnoea of the newborn [Recovered/Resolved]
  - Foetal growth restriction [Recovering/Resolving]
  - Placental insufficiency [Recovered/Resolved]
  - Foetal exposure during pregnancy [Recovered/Resolved]

NARRATIVE: CASE EVENT DATE: 20230101
